FAERS Safety Report 5807232-6 (Version None)
Quarter: 2008Q3

REPORT INFORMATION
  Report Type: 
  Country: None (occurrence: None)
  Receive Date: 20080711
  Receipt Date: 20080707
  Transmission Date: 20090109
  Serious: Yes (Death)
  Sender: FDA-Public Use
  Company Number: GB-ASTRAZENECA-2007GB01059

PATIENT
  Age: 71 Year
  Sex: Male

DRUGS (5)
  1. QUETIAPINE FUMARATE [Suspect]
     Indication: AGITATION
     Route: 048
     Dates: start: 20070323
  2. QUETIAPINE FUMARATE [Suspect]
     Indication: DEMENTIA
     Route: 048
     Dates: start: 20070323
  3. ENALAPRIL MALEATE [Concomitant]
  4. MIRTAZAPINE [Concomitant]
  5. OMEPRAZOLE [Concomitant]

REACTIONS (1)
  - INTESTINAL OBSTRUCTION [None]
